FAERS Safety Report 4792895-7 (Version None)
Quarter: 2005Q4

REPORT INFORMATION
  Report Type: 
  Country: None (occurrence: None)
  Receive Date: 20051010
  Receipt Date: 20050802
  Transmission Date: 20060501
  Serious: Yes (Hospitalization)
  Sender: FDA-Public Use
  Company Number: 2005AP04294

PATIENT
  Age: 605 Month
  Sex: Male

DRUGS (2)
  1. CASODEX [Suspect]
     Indication: PROSTATE CANCER
     Route: 048
     Dates: start: 20030813, end: 20030925
  2. BUP-4 [Suspect]
     Route: 048
     Dates: start: 20030813, end: 20050925

REACTIONS (4)
  - ALANINE AMINOTRANSFERASE INCREASED [None]
  - ASPARTATE AMINOTRANSFERASE INCREASED [None]
  - HEPATIC FUNCTION ABNORMAL [None]
  - LIVER DISORDER [None]
